FAERS Safety Report 6767330-X (Version None)
Quarter: 2010Q2

REPORT INFORMATION
  Report Type: 
  Country: None (occurrence: None)
  Receive Date: 20100611
  Receipt Date: 20100611
  Transmission Date: 20101027
  Serious: No
  Sender: FDA-Public Use
  Company Number: None

PATIENT
  Age: 58 Year
  Sex: Female

DRUGS (2)
  1. TEMAZEPAM [Suspect]
     Indication: SOMNOLENCE
     Dosage: 1 CAPSULE AT BEDTIME
  2. IBUPROFEN TABLETS [Suspect]
     Indication: KNEE OPERATION
     Dosage: 1 TABLET TWICE A DAY

REACTIONS (1)
  - DRUG EFFECT DECREASED [None]
